FAERS Safety Report 8061572-1 (Version None)
Quarter: 2012Q1

REPORT INFORMATION
  Report Type: 
  Country: None (occurrence: None)
  Receive Date: 20120122
  Receipt Date: 20120112
  Transmission Date: 20120608
  Serious: Yes (Hospitalization, Other)
  Sender: FDA-Public Use
  Company Number: DE-TEVA-317213GER

PATIENT
  Sex: Female
  Weight: 74 kg

DRUGS (5)
  1. HERCEPTIN [Suspect]
     Route: 042
     Dates: start: 20111117, end: 20120105
  2. DOXORUBICIN HCL [Suspect]
     Route: 042
     Dates: start: 20111117, end: 20120105
  3. CARBOPLATIN [Suspect]
     Route: 042
     Dates: start: 20111117, end: 20120105
  4. LAPATINIB [Suspect]
     Route: 048
     Dates: start: 20111118, end: 20120110
  5. PACLITAXEL [Suspect]
     Route: 042
     Dates: start: 20111117, end: 20120105

REACTIONS (2)
  - WHITE BLOOD CELL COUNT DECREASED [None]
  - FATIGUE [None]
